FAERS Safety Report 6022094-2 (Version None)
Quarter: 2008Q4

REPORT INFORMATION
  Report Type: 
  Country: None (occurrence: None)
  Receive Date: 20081223
  Receipt Date: 20081208
  Transmission Date: 20090506
  Serious: Yes (Hospitalization, Other)
  Sender: FDA-Public Use
  Company Number: 2280705-2008-00013

PATIENT
  Sex: Female

DRUGS (1)
  1. DERMAREST R ECZEMA MED. MOISTURIZER FOR SENS. SKIN [Suspect]
     Indication: SKIN IRRITATION
     Dosage: 060;NO MORE 3X-4X A DAY
     Dates: start: 20081201

REACTIONS (1)
  - SIALOADENITIS [None]
